FAERS Safety Report 17465492 (Version 1)
Quarter: 2020Q1

REPORT INFORMATION
  Report Type: Spontaneous
  Country: CN (occurrence: CN)
  Receive Date: 20200226
  Receipt Date: 20200226
  Transmission Date: 20200409
  Serious: Yes (Other)
  Sender: FDA-Public Use
  Company Number: CN-SUN PHARMACEUTICAL INDUSTRIES LTD-2020R1-237545

PATIENT
  Age: 81 Year
  Sex: Female

DRUGS (1)
  1. PRAMIPEXOLE. [Suspect]
     Active Substance: PRAMIPEXOLE
     Indication: RESTLESS LEGS SYNDROME
     Dosage: 0.125 MILLIGRAM, DAILY
     Route: 065

REACTIONS (5)
  - Compulsive hoarding [Recovered/Resolved]
  - Stereotypy [Recovered/Resolved]
  - Impulse-control disorder [Recovered/Resolved]
  - Hypersexuality [Recovered/Resolved]
  - Binge eating [Recovered/Resolved]
